FAERS Safety Report 7362231-0 (Version None)
Quarter: 2011Q1

REPORT INFORMATION
  Report Type: 
  Country: None (occurrence: None)
  Receive Date: 20110318
  Receipt Date: 20110309
  Transmission Date: 20110831
  Serious: Yes (Hospitalization)
  Sender: FDA-Public Use
  Company Number: US-ROCHE-765632

PATIENT
  Sex: Female
  Weight: 56.8 kg

DRUGS (2)
  1. CAPECITABINE [Suspect]
     Dosage: FREQUENCY: 1 TAB QAM; 2 TAB QPM; 2 WKS ON 1 WK OFF
     Route: 048
     Dates: start: 20110110, end: 20110227
  2. HERCEPTIN [Concomitant]

REACTIONS (3)
  - FALL [None]
  - DIARRHOEA [None]
  - LOWER LIMB FRACTURE [None]
